FAERS Safety Report 4262064-8 (Version None)
Quarter: 2004Q1

REPORT INFORMATION
  Report Type: 
  Country: None (occurrence: None)
  Receive Date: 20040102
  Receipt Date: 20031218
  Transmission Date: 20041129
  Serious: Yes (Congenital Anomaly)
  Sender: FDA-Public Use
  Company Number: GB-GLAXOSMITHKLINE-B0318156A

PATIENT

DRUGS (4)
  1. LAMIVUDINE [Suspect]
     Dosage: 300MG PER DAY
     Dates: start: 19991217, end: 20030409
  2. STAVUDINE [Concomitant]
     Dosage: 60MG PER DAY
     Dates: start: 19991217, end: 20030409
  3. EFAVIRENZ [Concomitant]
     Dosage: 600MG PER DAY
     Dates: start: 19991217, end: 20030409
  4. ABACAVIR SULPHATE+LAMIVUDINE+ZIDOVUDINE [Concomitant]
     Dosage: 1500MG PER DAY
     Dates: start: 20030409

REACTIONS (3)
  - DRUG EXPOSURE DURING PREGNANCY [None]
  - HIP DYSPLASIA [None]
  - MATERNAL DRUGS AFFECTING FOETUS [None]
